FAERS Safety Report 11341599 (Version 3)
Quarter: 2015Q3

REPORT INFORMATION
  Report Type: Report from Study
  Country: BR (occurrence: BR)
  Receive Date: 20150805
  Receipt Date: 20150827
  Transmission Date: 20151125
  Serious: Yes (Hospitalization, Other)
  Sender: FDA-Public Use
  Company Number: PHHY2015BR093870

PATIENT
  Age: 5 Year
  Sex: Female
  Weight: 19 kg

DRUGS (9)
  1. EXJADE [Suspect]
     Active Substance: DEFERASIROX
     Dosage: 1 DF (1 TABLET OF 125 MG), QD
     Route: 065
  2. EXJADE [Suspect]
     Active Substance: DEFERASIROX
     Dosage: 1 DF (1 TABLET OF 125 MG), AT 1 AM
     Route: 065
  3. TRILEPTAL [Suspect]
     Active Substance: OXCARBAZEPINE
     Indication: SEIZURE
     Dosage: 2 DF, QD
     Route: 065
  4. DEPAKENE [Interacting]
     Active Substance: VALPROIC ACID
     Indication: SEIZURE
     Dosage: 15 ML, QD
     Route: 065
  5. HYDREA [Concomitant]
     Active Substance: HYDROXYUREA
     Indication: HAEMOGLOBIN S INCREASED
     Dosage: 1 DF, QD
     Route: 065
  6. FOLIC ACID. [Concomitant]
     Active Substance: FOLIC ACID
     Indication: ANAEMIA
     Dosage: 1 DF, QD
     Route: 065
  7. EXJADE [Suspect]
     Active Substance: DEFERASIROX
     Indication: SICKLE CELL ANAEMIA
     Dosage: 1 DF (1 TABLET OF 500 MG), QD (AT DAWN)
     Route: 065
  8. CARBAMAZEPINE. [Interacting]
     Active Substance: CARBAMAZEPINE
     Indication: SEIZURE
     Dosage: 7 ML, QD
     Route: 048
  9. PERVIORAL [Concomitant]
     Indication: INFECTION PROPHYLAXIS
     Dosage: 10 ML, QD
     Route: 065

REACTIONS (9)
  - Somnolence [Recovering/Resolving]
  - Gastrooesophageal reflux disease [Recovering/Resolving]
  - Nausea [Unknown]
  - Vomiting [Unknown]
  - Dysphagia [Unknown]
  - Drug interaction [Unknown]
  - Cerebrovascular accident [Recovering/Resolving]
  - Off label use [Unknown]
  - Seizure [Unknown]

NARRATIVE: CASE EVENT DATE: 20150202
